FAERS Safety Report 8906747 (Version 1)
Quarter: 2012Q4

REPORT INFORMATION
  Report Type: 
  Country: US (occurrence: US)
  Receive Date: 20121114
  Receipt Date: 20121114
  Transmission Date: 20130627
  Serious: Yes (Other)
  Sender: FDA-Public Use
  Company Number: US-ACTELION-A-CH2012-74328

PATIENT
  Age: 64 Year
  Sex: Female

DRUGS (1)
  1. VELETRI [Suspect]
     Indication: PORTOPULMONARY HYPERTENSION
     Dosage: 91 ng/kg, UNK
     Route: 041

REACTIONS (13)
  - Pancytopenia [Recovered/Resolved]
  - Autoimmune thrombocytopenia [Recovered/Resolved]
  - Biopsy bone marrow [Unknown]
  - Marrow hyperplasia [Unknown]
  - Megakaryocytes increased [Unknown]
  - Haemoglobin decreased [Recovered/Resolved]
  - Platelet count decreased [Recovered/Resolved]
  - White blood cell count decreased [Recovered/Resolved]
  - Splenomegaly [Unknown]
  - Splenectomy [Unknown]
  - Spleen congestion [Unknown]
  - Anaemia [Recovered/Resolved]
  - Hypersplenism [None]
